FAERS Safety Report 4293170-X (Version None)
Quarter: 2004Q1

REPORT INFORMATION
  Report Type: 
  Country: None (occurrence: None)
  Receive Date: 20040212
  Receipt Date: 20030618
  Transmission Date: 20041129
  Serious: No
  Sender: FDA-Public Use
  Company Number: US-GLAXOSMITHKLINE-A0412955A

PATIENT
  Age: 43 Year
  Sex: Female

DRUGS (1)
  1. PAXIL [Suspect]
     Indication: PREMENSTRUAL SYNDROME
     Dates: start: 19960101

REACTIONS (3)
  - DIZZINESS [None]
  - PARAESTHESIA [None]
  - WEIGHT INCREASED [None]
